FAERS Safety Report 18317892 (Version 1)
Quarter: 2020Q3

REPORT INFORMATION
  Report Type: Spontaneous
  Country: US (occurrence: US)
  Receive Date: 20200925
  Receipt Date: 20200925
  Transmission Date: 20201103
  Serious: Yes (Hospitalization)
  Sender: FDA-Public Use
  Company Number: None

PATIENT
  Age: 76 Year
  Sex: Male

DRUGS (5)
  1. DOFETILIDE. [Suspect]
     Active Substance: DOFETILIDE
     Indication: MYOCARDIAL ISCHAEMIA
     Route: 048
     Dates: start: 20180117
  2. LEVETIRACETA [Concomitant]
     Active Substance: LEVETIRACETAM
  3. CARVEDILOL. [Concomitant]
     Active Substance: CARVEDILOL
  4. ROSUVASTATIN. [Concomitant]
     Active Substance: ROSUVASTATIN
  5. ESCITALOPRAM [Concomitant]
     Active Substance: ESCITALOPRAM OXALATE

REACTIONS (2)
  - Hospitalisation [None]
  - Therapy interrupted [None]

NARRATIVE: CASE EVENT DATE: 20200905
